FAERS Safety Report 4379776-8 (Version None)
Quarter: 2004Q2

REPORT INFORMATION
  Report Type: 
  Country: None (occurrence: None)
  Receive Date: 20040614
  Receipt Date: 20040528
  Transmission Date: 20050107
  Serious: Yes (Hospitalization, Other)
  Sender: FDA-Public Use
  Company Number: 199056

PATIENT
  Age: 52 Year
  Sex: Female
  Weight: 63.5036 kg

DRUGS (4)
  1. AVONEX ^BIOGEN^ [Suspect]
     Indication: MULTIPLE SCLEROSIS
     Dosage: 30 MCG QW IM
     Route: 030
     Dates: start: 20010801, end: 20030801
  2. AVONEX ^BIOGEN^ [Suspect]
     Indication: MULTIPLE SCLEROSIS
     Dosage: 30 MCG QW IM
     Route: 030
     Dates: start: 20030801
  3. TENORMIN [Concomitant]
  4. PREVACID [Concomitant]

REACTIONS (14)
  - ASTHENIA [None]
  - BALANCE DISORDER [None]
  - COMA [None]
  - FALL [None]
  - HEAD INJURY [None]
  - HEAT STROKE [None]
  - NEOPLASM [None]
  - ORAL FUNGAL INFECTION [None]
  - PNEUMONIA BACTERIAL [None]
  - RETINAL DETACHMENT [None]
  - ROAD TRAFFIC ACCIDENT [None]
  - SLEEP APNOEA SYNDROME [None]
  - SLEEP DISORDER [None]
  - VAGINAL MYCOSIS [None]
